FAERS Safety Report 7325277-4 (Version None)
Quarter: 2011Q1

REPORT INFORMATION
  Report Type: 
  Country: None (occurrence: None)
  Receive Date: 20110302
  Receipt Date: 20110223
  Transmission Date: 20110831
  Serious: Yes (Hospitalization)
  Sender: FDA-Public Use
  Company Number: BR-US-EMD SERONO, INC.-7042725

PATIENT
  Sex: Female

DRUGS (10)
  1. PAROXETINE [Concomitant]
  2. CAPTOPRIL [Concomitant]
  3. OMEPRAZOLE [Concomitant]
  4. AMYTRIPTYLINE [Concomitant]
  5. METOTREXATO [Concomitant]
  6. PARACETAMOL [Concomitant]
  7. REBIF [Suspect]
     Indication: RELAPSING-REMITTING MULTIPLE SCLEROSIS
     Dates: start: 20071008
  8. AMLODIPINE [Concomitant]
  9. HYDROCHLOROTHIAZIDE [Concomitant]
  10. ASPIRIN [Concomitant]

REACTIONS (4)
  - FATIGUE [None]
  - PAIN [None]
  - BLINDNESS UNILATERAL [None]
  - SENSATION OF HEAVINESS [None]
